FAERS Safety Report 15657260 (Version 1)
Quarter: 2018Q4

REPORT INFORMATION
  Report Type: Spontaneous
  Country: IT (occurrence: IT)
  Receive Date: 20181126
  Receipt Date: 20181126
  Transmission Date: 20190205
  Serious: Yes (Hospitalization, Other)
  Sender: FDA-Public Use
  Company Number: IT-SAKK-2018SA158724AA

PATIENT
  Age: 53 Year
  Sex: Male
  Weight: 88 kg

DRUGS (7)
  1. VARGATEF [Suspect]
     Active Substance: NINTEDANIB
     Indication: METASTATIC NEOPLASM
     Route: 065
     Dates: start: 201803
  2. CARDIOASPIRIN [Concomitant]
     Active Substance: ASPIRIN
     Indication: CARDIAC DISORDER
     Dosage: 140 MG, QD
     Route: 065
     Dates: start: 201803
  3. DOCETAXEL. [Suspect]
     Active Substance: DOCETAXEL
     Indication: METASTATIC NEOPLASM
     Dosage: DOSAGE: 75 MG/M2
     Route: 065
     Dates: start: 201803
  4. CONGESCOR [Concomitant]
     Active Substance: BISOPROLOL
     Indication: CARDIAC DISORDER
     Route: 065
  5. KEPPRA [Concomitant]
     Active Substance: LEVETIRACETAM
     Indication: EPILEPSY
     Route: 065
     Dates: start: 201706
  6. ESKIM [Concomitant]
     Active Substance: OMEGA-3 FATTY ACIDS
     Indication: DYSLIPIDAEMIA
     Dosage: STRENGTH: 1000
     Route: 065
  7. TORVAST [Concomitant]
     Active Substance: ATORVASTATIN
     Indication: DYSLIPIDAEMIA
     Route: 065

REACTIONS (1)
  - Jejunal perforation [Not Recovered/Not Resolved]
